FAERS Safety Report 15561520 (Version 3)
Quarter: 2018Q4

REPORT INFORMATION
  Report Type: Report from Study
  Country: FR (occurrence: FR)
  Receive Date: 20181029
  Receipt Date: 20181127
  Transmission Date: 20190205
  Serious: Yes (Death, Hospitalization, Other)
  Sender: FDA-Public Use
  Company Number: FR-PFIZER INC-2018437444

PATIENT
  Age: 55 Year
  Sex: Male
  Weight: 60 kg

DRUGS (11)
  1. PIPERACILLIN/TAZOBACTAM [Suspect]
     Active Substance: PIPERACILLIN SODIUM\TAZOBACTAM SODIUM
     Dosage: 4 G, 2X/DAY
     Route: 042
     Dates: start: 20160603
  2. PRINCI-B FORT [Concomitant]
     Active Substance: CYANOCOBALAMIN\PYRIDOXINE\THIAMINE
  3. ROVALCYTE [Concomitant]
     Active Substance: VALGANCICLOVIR HYDROCHLORIDE
  4. ZEPATIER [Suspect]
     Active Substance: ELBASVIR\GRAZOPREVIR
     Indication: HEPATITIS C
     Dosage: 1 DF, 1X/DAY
     Route: 048
     Dates: start: 20160314, end: 20160610
  5. SELENIUM [Concomitant]
     Active Substance: SELENIUM
     Dosage: 1 DF, WEEKLY
     Route: 042
     Dates: start: 20160414
  6. PROGRAF [Concomitant]
     Active Substance: TACROLIMUS\TACROLIMUS ANHYDROUS
     Dosage: 1.5 MG, 1X/DAY IN THE EVENING
  7. MYCOPHENOLATE MOFETIL. [Concomitant]
     Active Substance: MYCOPHENOLATE MOFETIL
  8. SPECIAFOLDINE [Concomitant]
     Active Substance: FOLIC ACID
  9. PANTOPRAZOLE [Concomitant]
     Active Substance: PANTOPRAZOLE
  10. CORTANCYL [Concomitant]
     Active Substance: PREDNISONE
  11. PROGRAF [Concomitant]
     Active Substance: TACROLIMUS\TACROLIMUS ANHYDROUS
     Dosage: 1.5 MG, 1X/DAY, IN THE MORNING

REACTIONS (10)
  - Coma [Recovered/Resolved]
  - Vascular device infection [Unknown]
  - Seizure [Recovered/Resolved]
  - Ammonia decreased [Unknown]
  - Pneumocystis jirovecii pneumonia [Unknown]
  - Erysipelas [Unknown]
  - Sepsis [Unknown]
  - Death [Fatal]
  - Cytomegalovirus infection [Unknown]
  - Encephalopathy [Unknown]

NARRATIVE: CASE EVENT DATE: 2016
